FAERS Safety Report 6123369-9 (Version None)
Quarter: 2009Q1

REPORT INFORMATION
  Report Type: 
  Country: None (occurrence: None)
  Receive Date: 20090318
  Receipt Date: 20081204
  Transmission Date: 20090719
  Serious: No
  Sender: FDA-Public Use
  Company Number: US-TYCO HEALTHCARE/MALLINCKRODT-T200802097

PATIENT
  Sex: Female

DRUGS (1)
  1. XENON XE-133 [Suspect]
     Dosage: UNK
     Dates: start: 20081201, end: 20081201

REACTIONS (1)
  - ACCIDENTAL EXPOSURE [None]
